FAERS Safety Report 8729875 (Version 3)
Quarter: 2012Q4

REPORT INFORMATION
  Report Type: 
  Country: US (occurrence: US)
  Receive Date: 20120817
  Receipt Date: 20121017
  Transmission Date: 20130627
  Serious: Yes (Death)
  Sender: FDA-Public Use
  Company Number: US-GLAXOSMITHKLINE-A0989086A

PATIENT
  Age: 47 Year
  Sex: Female

DRUGS (3)
  1. ARIXTRA [Suspect]
     Indication: DEEP VEIN THROMBOSIS
     Dosage: 5MG Per day
     Route: 058
     Dates: start: 201207
  2. METHADONE [Concomitant]
  3. MORPHINE [Concomitant]

REACTIONS (1)
  - Cholangiocarcinoma [Fatal]
